FAERS Safety Report 12143120 (Version 2)
Quarter: 2016Q2

REPORT INFORMATION
  Report Type: Report from Study
  Country: JP (occurrence: JP)
  Receive Date: 20160303
  Receipt Date: 20160520
  Transmission Date: 20160815
  Serious: No
  Sender: FDA-Public Use
  Company Number: JP-FRI-1000083067

PATIENT
  Age: 52 Year
  Sex: Male
  Weight: 71.3 kg

DRUGS (52)
  1. FAMOTIDINE. [Concomitant]
     Active Substance: FAMOTIDINE
     Indication: GASTRITIS PROPHYLAXIS
     Route: 048
     Dates: start: 20121005, end: 20121115
  2. LOXOPROFEN SODIUM HYDRATE [Concomitant]
     Active Substance: LOXOPROFEN SODIUM DIHYDRATE
     Indication: MUSCULOSKELETAL PAIN
  3. DECLOFENAC SODIUM [Concomitant]
     Indication: MUSCULOSKELETAL PAIN
     Route: 061
     Dates: start: 20130609
  4. EPERISONE HYDROCHLORIDE [Concomitant]
     Active Substance: EPERISONE HYDROCHLORIDE
     Indication: BACK PAIN
     Route: 048
     Dates: end: 20121221
  5. LOXOPROFEN SODIUM HYDRATE [Concomitant]
     Active Substance: LOXOPROFEN SODIUM DIHYDRATE
     Indication: BACK PAIN
     Route: 061
     Dates: start: 20121029, end: 20121112
  6. CARIPRAZINE [Suspect]
     Active Substance: CARIPRAZINE
     Dates: start: 20130306, end: 20130828
  7. DAIKENCHUTO [Concomitant]
     Active Substance: HERBALS
     Indication: CONSTIPATION
     Route: 048
     Dates: end: 20120829
  8. SOLITA T NO 3 [Concomitant]
     Route: 042
     Dates: start: 20130221, end: 20130221
  9. MYDRIN P [Concomitant]
     Active Substance: PHENYLEPHRINE HYDROCHLORIDE\TROPICAMIDE
     Indication: PUPIL DILATION PROCEDURE
     Route: 031
     Dates: start: 20120817, end: 20120817
  10. MYDRIN P [Concomitant]
     Active Substance: PHENYLEPHRINE HYDROCHLORIDE\TROPICAMIDE
     Route: 031
     Dates: start: 20121112, end: 20121112
  11. OMEPRAZOLE. [Concomitant]
     Active Substance: OMEPRAZOLE
     Indication: GASTRITIS PROPHYLAXIS
     Route: 048
     Dates: end: 20121004
  12. SODIUM PICOSULFATE HYDRATE [Concomitant]
     Indication: CONSTIPATION
     Route: 048
     Dates: start: 20120903, end: 20121119
  13. DICLOFENAC SODIUM. [Concomitant]
     Active Substance: DICLOFENAC SODIUM
     Route: 054
     Dates: start: 20130221, end: 20130221
  14. EKSALB [Concomitant]
     Indication: DERMATITIS
     Route: 061
     Dates: start: 20130603, end: 20130611
  15. DAIKENCHUTO [Concomitant]
     Active Substance: HERBALS
     Indication: CONSTIPATION PROPHYLAXIS
     Route: 048
     Dates: start: 20120830, end: 20121221
  16. SENNOSIDE A+B [Concomitant]
     Active Substance: SENNOSIDES A AND B
     Indication: CONSTIPATION
     Route: 048
     Dates: start: 20120903, end: 20120906
  17. LORAZEPAM. [Concomitant]
     Active Substance: LORAZEPAM
     Indication: RESTLESSNESS
     Route: 048
     Dates: start: 20120821, end: 20120823
  18. LORAZEPAM. [Concomitant]
     Active Substance: LORAZEPAM
     Route: 048
     Dates: start: 20120824, end: 20120824
  19. LORAZEPAM. [Concomitant]
     Active Substance: LORAZEPAM
     Route: 048
     Dates: start: 20120805, end: 20121221
  20. DICLOFENAC SODIUM. [Concomitant]
     Active Substance: DICLOFENAC SODIUM
     Indication: BACK PAIN
     Route: 048
     Dates: end: 20121221
  21. SUCRALFATE HYDRATE [Concomitant]
     Indication: GASTRITIS PROPHYLAXIS
  22. S M COMBINATION POWDER [Concomitant]
     Indication: ABDOMINAL PAIN UPPER
     Route: 048
     Dates: start: 20121111, end: 20121111
  23. ESOMEPRAZOLE MAGNESIUM HYDRATE [Concomitant]
     Indication: ABDOMINAL DISCOMFORT
     Route: 048
     Dates: start: 20130222, end: 20131011
  24. KETOPROFEN. [Concomitant]
     Active Substance: KETOPROFEN
     Indication: BACK PAIN
     Route: 061
     Dates: end: 20120911
  25. KETOPROFEN. [Concomitant]
     Active Substance: KETOPROFEN
     Indication: MUSCULOSKELETAL PAIN
  26. EPERISONE HYDROCHLORIDE [Concomitant]
     Active Substance: EPERISONE HYDROCHLORIDE
     Indication: MUSCULOSKELETAL PAIN
     Route: 048
     Dates: start: 20130325, end: 20130422
  27. ATORVASTATIN CALCIUM HYDRATE [Concomitant]
     Active Substance: ATORVASTATIN CALCIUM
     Indication: HYPERLIPIDAEMIA
     Route: 048
     Dates: start: 20121220
  28. CARIPRAZINE [Suspect]
     Active Substance: CARIPRAZINE
     Indication: SCHIZOPHRENIA
     Dates: start: 20120817, end: 20120927
  29. SOLITA T NO 3 [Concomitant]
     Indication: DECREASED APPETITE
     Route: 042
     Dates: start: 20120908, end: 20120908
  30. ZOPICLONE [Concomitant]
     Active Substance: ZOPICLONE
     Indication: SCHIZOPHRENIA
     Route: 048
     Dates: start: 20130215, end: 20130220
  31. DICLOFENAC SODIUM. [Concomitant]
     Active Substance: DICLOFENAC SODIUM
     Indication: MUSCULOSKELETAL PAIN
     Route: 061
     Dates: start: 20121220, end: 20130422
  32. SUCRALFATE HYDRATE [Concomitant]
     Indication: ABDOMINAL PAIN UPPER
     Route: 048
     Dates: start: 20121112, end: 20121221
  33. ESOMEPRAZOLE MAGNESIUM HYDRATE [Concomitant]
     Indication: GASTRITIS PROPHYLAXIS
     Route: 048
     Dates: start: 20121116, end: 20121221
  34. GLYCERON [Concomitant]
     Indication: LIVER FUNCTION TEST INCREASED
     Route: 048
     Dates: start: 20121220, end: 20130221
  35. DICLOFENAC SODIUM. [Concomitant]
     Active Substance: DICLOFENAC SODIUM
     Indication: BACK PAIN
     Route: 048
     Dates: start: 20130325, end: 20130422
  36. CARIPRAZINE [Suspect]
     Active Substance: CARIPRAZINE
     Dates: start: 20120928, end: 20121107
  37. GLYCERIN. [Concomitant]
     Active Substance: GLYCERIN
     Indication: CONSTIPATION
     Dates: start: 20120902, end: 20120904
  38. ZOPICLONE [Concomitant]
     Active Substance: ZOPICLONE
     Indication: INSOMNIA
     Route: 048
     Dates: end: 20121221
  39. LORAZEPAM. [Concomitant]
     Active Substance: LORAZEPAM
     Route: 048
     Dates: start: 20130221, end: 20130221
  40. CARIPRAZINE [Suspect]
     Active Substance: CARIPRAZINE
     Dates: start: 20121108, end: 20130305
  41. DAIKENCHUTO [Concomitant]
     Active Substance: HERBALS
     Route: 048
     Dates: start: 20130702, end: 20130709
  42. SENNOSIDE A+B [Concomitant]
     Active Substance: SENNOSIDES A AND B
     Route: 048
     Dates: start: 20130702, end: 20130903
  43. SOLITA T NO 3 [Concomitant]
     Route: 042
     Dates: start: 20120914, end: 20120914
  44. SOLITA T NO 3 [Concomitant]
     Route: 042
     Dates: start: 20120919, end: 20120920
  45. MYDRIN P [Concomitant]
     Active Substance: PHENYLEPHRINE HYDROCHLORIDE\TROPICAMIDE
     Route: 031
     Dates: start: 20121005, end: 20121005
  46. MYDRIN P [Concomitant]
     Active Substance: PHENYLEPHRINE HYDROCHLORIDE\TROPICAMIDE
     Route: 031
     Dates: start: 20121207, end: 20121207
  47. MYDRIN P [Concomitant]
     Active Substance: PHENYLEPHRINE HYDROCHLORIDE\TROPICAMIDE
     Route: 031
     Dates: start: 20130325, end: 20130325
  48. MYDRIN P [Concomitant]
     Active Substance: PHENYLEPHRINE HYDROCHLORIDE\TROPICAMIDE
     Route: 031
     Dates: start: 20130603, end: 20130603
  49. LORAZEPAM. [Concomitant]
     Active Substance: LORAZEPAM
     Indication: SCHIZOPHRENIA
     Route: 048
     Dates: start: 20120823, end: 20120823
  50. LORAZEPAM. [Concomitant]
     Active Substance: LORAZEPAM
     Route: 048
     Dates: start: 20130224, end: 20130318
  51. LORAZEPAM. [Concomitant]
     Active Substance: LORAZEPAM
     Route: 048
     Dates: start: 20130320, end: 20130602
  52. KETOPROFEN. [Concomitant]
     Active Substance: KETOPROFEN
     Indication: MUSCULOSKELETAL PAIN
     Route: 061
     Dates: start: 20130607, end: 20130608

REACTIONS (1)
  - Retinal haemorrhage [Recovered/Resolved]

NARRATIVE: CASE EVENT DATE: 20121112
